FAERS Safety Report 14336523 (Version 1)
Quarter: 2017Q4

REPORT INFORMATION
  Report Type: Spontaneous
  Country: IT (occurrence: IT)
  Receive Date: 20171229
  Receipt Date: 20171229
  Transmission Date: 20180321
  Serious: Yes (Hospitalization, Other)
  Sender: FDA-Public Use
  Company Number: IT-AUROBINDO-AUR-APL-2017-48074

PATIENT
  Age: 43 Year
  Sex: Male

DRUGS (15)
  1. KIVEXA [Suspect]
     Active Substance: ABACAVIR SULFATE\LAMIVUDINE
     Indication: HIV INFECTION
     Dosage: 30X300+600 MG TABLETS IN PVC/PVDC/AL BLISTER PACK ()
     Route: 048
     Dates: start: 20120621
  2. NORVIR [Suspect]
     Active Substance: RITONAVIR
     Indication: HIV INFECTION
     Dosage: 100 MG BOTTLE (HDPE)-30 TABLETS
     Route: 048
     Dates: start: 20091007, end: 20150722
  3. REYATAZ [Suspect]
     Active Substance: ATAZANAVIR SULFATE
     Indication: ACQUIRED IMMUNODEFICIENCY SYNDROME
     Route: 048
     Dates: start: 20091007, end: 20150722
  4. TRUVADA [Concomitant]
     Active Substance: EMTRICITABINE\TENOFOVIR DISOPROXIL FUMARATE
     Indication: HIV INFECTION
     Dosage: ()
     Route: 048
     Dates: start: 20091007, end: 20120621
  5. TALOFEN [Concomitant]
     Active Substance: PROMAZINE HYDROCHLORIDE
     Dosage: 4 GM/100 MLM -30ML BOTTLE SOLUTIONS
     Route: 048
     Dates: start: 20130513
  6. DAKLINZA [Suspect]
     Active Substance: DACLATASVIR
     Indication: HEPATITIS C
     Dosage: 30 MG BLISTER PACK (PVC/PCTFE/AL)-28 TABLETS
     Route: 048
     Dates: start: 20150603, end: 20150722
  7. DIBASE [Concomitant]
     Active Substance: CHOLECALCIFEROL
     Route: 048
     Dates: start: 20120522
  8. METHADONE [Concomitant]
     Active Substance: METHADONE HYDROCHLORIDE
     Indication: DRUG DEPENDENCE
     Dosage: ()
     Route: 048
     Dates: start: 20090803
  9. PERIDON                            /00498201/ [Concomitant]
     Active Substance: DOMPERIDONE
     Indication: NAUSEA
     Dosage: ()
     Route: 048
     Dates: start: 20110706, end: 20150408
  10. COPEGUS [Suspect]
     Active Substance: RIBAVIRIN
     Indication: HEPATITIS C
     Dosage: 200 MG -42 TABLETS IN A BOTTLE
     Route: 048
     Dates: start: 20150603, end: 20151111
  11. LAMIVUDINE. [Suspect]
     Active Substance: LAMIVUDINE
     Indication: HIV INFECTION
     Dosage: ()
     Route: 065
  12. SOVALDI [Suspect]
     Active Substance: SOFOSBUVIR
     Route: 065
  13. LAEVOLAC EPS [Concomitant]
     Dosage: ()
     Route: 051
     Dates: start: 20150107
  14. NEORECORMON [Concomitant]
     Active Substance: ERYTHROPOIETIN
     Indication: ANAEMIA
     Dosage: ()
     Dates: start: 20150708, end: 20151110
  15. GAVISCON ADVANCE [Concomitant]
     Active Substance: POTASSIUM BICARBONATE\SODIUM ALGINATE
     Indication: DYSPEPSIA
     Dosage: ()
     Route: 048
     Dates: start: 20120221, end: 20150408

REACTIONS (5)
  - Hyperbilirubinaemia [Recovering/Resolving]
  - Nephrolithiasis [Recovered/Resolved]
  - Biliary colic [Unknown]
  - Haemoglobin decreased [Not Recovered/Not Resolved]
  - Cholelithiasis [Recovered/Resolved]

NARRATIVE: CASE EVENT DATE: 20150722
